FAERS Safety Report 18281836 (Version 1)
Quarter: 2020Q3

REPORT INFORMATION
  Report Type: Spontaneous
  Country: US (occurrence: US)
  Receive Date: 20200918
  Receipt Date: 20200918
  Transmission Date: 20201103
  Serious: Yes (Life-Threatening, Hospitalization)
  Sender: FDA-Public Use
  Company Number: US-LUPIN PHARMACEUTICALS INC.-2020-06137

PATIENT
  Age: 48 Year
  Sex: Male

DRUGS (5)
  1. BIVALIRUDIN. [Concomitant]
     Active Substance: BIVALIRUDIN
     Dosage: 0.34 MILLIGRAM/KILOGRAM
     Route: 065
  2. BIVALIRUDIN. [Concomitant]
     Active Substance: BIVALIRUDIN
     Dosage: BIVALIRUDIN TO BE INFUSED INTO THE CIRCUIT PREOXYGENATOR
     Route: 065
  3. BIVALIRUDIN. [Concomitant]
     Active Substance: BIVALIRUDIN
     Indication: ANTICOAGULANT THERAPY
     Dosage: 0.15 MILLIGRAM/KILOGRAM
     Route: 065
  4. OSELTAMIVIR [Suspect]
     Active Substance: OSELTAMIVIR
     Indication: PNEUMONIA INFLUENZAL
     Dosage: UNK
     Route: 065
  5. BIVALIRUDIN. [Concomitant]
     Active Substance: BIVALIRUDIN
     Dosage: BIVALIRUDIN TO BE INFUSED VIA CENTRAL LINE
     Route: 065

REACTIONS (1)
  - Drug ineffective [Unknown]
